FAERS Safety Report 5273975-9 (Version None)
Quarter: 2007Q1

REPORT INFORMATION
  Report Type: 
  Country: None (occurrence: None)
  Receive Date: 20070323
  Receipt Date: 20070319
  Transmission Date: 20070707
  Serious: Yes (Hospitalization)
  Sender: FDA-Public Use
  Company Number: 153413USA

PATIENT
  Age: 53 Year
  Sex: Male
  Weight: 95 kg

DRUGS (4)
  1. SEREVENT [Suspect]
     Indication: ASTHMA
     Dosage: 50MCG TWICE PER DAY
     Route: 055
     Dates: start: 20061221
  2. ADVAIR DISKUS 100/50 [Suspect]
     Indication: ASTHMA
     Route: 055
     Dates: start: 20061122
  3. PREDNISONE [Suspect]
     Indication: ASTHMA
     Dosage: 50MG PER DAY
     Route: 048
     Dates: start: 20070220
  4. BECLOMETHASONE DIPROPIONATE [Suspect]
     Indication: ASTHMA
     Dosage: 240MCG TWICE PER DAY
     Route: 055
     Dates: start: 20061221

REACTIONS (1)
  - GASTROINTESTINAL HAEMORRHAGE [None]
